FAERS Safety Report 25299733 (Version 2)
Quarter: 2025Q2

REPORT INFORMATION
  Report Type: Spontaneous
  Country: JP (occurrence: JP)
  Receive Date: 20250512
  Receipt Date: 20250516
  Transmission Date: 20250717
  Serious: No
  Sender: GALDERMA
  Company Number: JP-GALDERMA-JP2025004189

PATIENT

DRUGS (5)
  1. NEMOLIZUMAB [Suspect]
     Active Substance: NEMOLIZUMAB
     Indication: Neurodermatitis
     Route: 058
     Dates: start: 20241001, end: 20241001
  2. NEMOLIZUMAB [Suspect]
     Active Substance: NEMOLIZUMAB
     Route: 058
  3. VTAMA [Concomitant]
     Active Substance: TAPINAROF
     Indication: Dermatitis atopic
     Route: 061
     Dates: start: 20250121, end: 20250221
  4. DEXAMETHASONE DIPROPIONATE [Concomitant]
     Active Substance: DEXAMETHASONE DIPROPIONATE
     Indication: Dermatitis atopic
     Route: 061
     Dates: start: 20230615
  5. DELGOCITINIB [Concomitant]
     Active Substance: DELGOCITINIB
     Indication: Dermatitis atopic
     Route: 061
     Dates: start: 20220413

REACTIONS (1)
  - Erythema multiforme [Recovered/Resolved]

NARRATIVE: CASE EVENT DATE: 20250221
